FAERS Safety Report 6342464-2 (Version None)
Quarter: 2009Q3

REPORT INFORMATION
  Report Type: 
  Country: None (occurrence: None)
  Receive Date: 20090908
  Receipt Date: 20040123
  Transmission Date: 20100115
  Serious: No
  Sender: FDA-Public Use
  Company Number: JP-ROCHE-357424

PATIENT
  Sex: Female

DRUGS (5)
  1. TAMIFLU [Suspect]
     Route: 048
     Dates: start: 20040115, end: 20040119
  2. CLARITH [Concomitant]
     Route: 048
     Dates: start: 20040115, end: 20040119
  3. MUCOSTA [Concomitant]
     Route: 048
     Dates: start: 20040115, end: 20040119
  4. CALONAL [Concomitant]
     Route: 048
     Dates: start: 20040115, end: 20040119
  5. ALESION [Concomitant]
     Route: 048
     Dates: start: 20040115, end: 20040119

REACTIONS (2)
  - DRUG EXPOSURE DURING PREGNANCY [None]
  - PREGNANCY [None]
